FAERS Safety Report 9438776 (Version 1)
Quarter: 2013Q3

REPORT INFORMATION
  Report Type: Report from Study
  Country: FR (occurrence: FR)
  Receive Date: 20130802
  Receipt Date: 20130802
  Transmission Date: 20140515
  Serious: Yes (Death, Hospitalization)
  Sender: FDA-Public Use
  Company Number: FR-PFIZER INC-2013226153

PATIENT
  Age: 64 Year
  Sex: Male

DRUGS (1)
  1. SUNITINIB MALATE [Suspect]
     Indication: CHOLANGIOCARCINOMA
     Dosage: 37.5 MG, 1X/DAY
     Dates: start: 20130129, end: 20130205

REACTIONS (2)
  - Gastric perforation [Fatal]
  - Peritonitis [Fatal]
